FAERS Safety Report 22165229 (Version 2)
Quarter: 2023Q2

REPORT INFORMATION
  Report Type: Report from Study
  Country: US (occurrence: US)
  Receive Date: 20230403
  Receipt Date: 20230630
  Transmission Date: 20230721
  Serious: Yes (Hospitalization, Other)
  Sender: FDA-Public Use
  Company Number: US-TAKEDA-2023TUS033157

PATIENT
  Age: 71 Year
  Sex: Female

DRUGS (16)
  1. TEDUGLUTIDE [Suspect]
     Active Substance: TEDUGLUTIDE
     Indication: Short-bowel syndrome
     Dosage: 3.5 MILLIGRAM, QD
     Route: 042
     Dates: start: 20161227, end: 20190507
  2. TEDUGLUTIDE [Suspect]
     Active Substance: TEDUGLUTIDE
     Indication: Short-bowel syndrome
     Dosage: 3.5 MILLIGRAM, QD
     Route: 042
     Dates: start: 20161227, end: 20190507
  3. TEDUGLUTIDE [Suspect]
     Active Substance: TEDUGLUTIDE
     Indication: Short-bowel syndrome
     Dosage: 3.5 MILLIGRAM, QD
     Route: 042
     Dates: start: 20161227, end: 20190507
  4. TEDUGLUTIDE [Suspect]
     Active Substance: TEDUGLUTIDE
     Indication: Short-bowel syndrome
     Dosage: 3.5 MILLIGRAM, QD
     Route: 042
     Dates: start: 20161227, end: 20190507
  5. TEDUGLUTIDE [Suspect]
     Active Substance: TEDUGLUTIDE
     Dosage: 4.6 MILLIGRAM, QD
     Route: 042
     Dates: start: 20190507, end: 20201025
  6. TEDUGLUTIDE [Suspect]
     Active Substance: TEDUGLUTIDE
     Dosage: 4.6 MILLIGRAM, QD
     Route: 042
     Dates: start: 20190507, end: 20201025
  7. TEDUGLUTIDE [Suspect]
     Active Substance: TEDUGLUTIDE
     Dosage: 4.6 MILLIGRAM, QD
     Route: 042
     Dates: start: 20190507, end: 20201025
  8. TEDUGLUTIDE [Suspect]
     Active Substance: TEDUGLUTIDE
     Dosage: 4.6 MILLIGRAM, QD
     Route: 042
     Dates: start: 20190507, end: 20201025
  9. TEDUGLUTIDE [Suspect]
     Active Substance: TEDUGLUTIDE
     Dosage: 2.8 MILLIGRAM, QD
     Route: 042
     Dates: start: 20201025, end: 20210918
  10. TEDUGLUTIDE [Suspect]
     Active Substance: TEDUGLUTIDE
     Dosage: 2.8 MILLIGRAM, QD
     Route: 042
     Dates: start: 20201025, end: 20210918
  11. TEDUGLUTIDE [Suspect]
     Active Substance: TEDUGLUTIDE
     Dosage: 2.8 MILLIGRAM, QD
     Route: 042
     Dates: start: 20201025, end: 20210918
  12. TEDUGLUTIDE [Suspect]
     Active Substance: TEDUGLUTIDE
     Dosage: 2.8 MILLIGRAM, QD
     Route: 042
     Dates: start: 20201025, end: 20210918
  13. BACTRIM [Concomitant]
     Active Substance: SULFAMETHOXAZOLE\TRIMETHOPRIM
     Indication: Urinary tract infection
     Dosage: 1 DOSAGE FORM, BID
     Route: 048
     Dates: start: 20210323, end: 20210402
  14. VANCOMYCIN [Concomitant]
     Active Substance: VANCOMYCIN
     Indication: Bacteraemia
     Dosage: 1.25 GRAM, SINGLE
     Route: 042
     Dates: start: 20210329, end: 20210329
  15. VANCOMYCIN [Concomitant]
     Active Substance: VANCOMYCIN
     Indication: Pulmonary amyloidosis
     Dosage: 1 GRAM, BID
     Route: 042
     Dates: start: 20210330, end: 20210331
  16. ZOSYN [Concomitant]
     Active Substance: PIPERACILLIN SODIUM\TAZOBACTAM SODIUM
     Indication: Bacteraemia
     Dosage: 4.5 GRAM, TID
     Route: 042
     Dates: start: 20210329, end: 20210404

REACTIONS (1)
  - Pneumonia [Recovered/Resolved]

NARRATIVE: CASE EVENT DATE: 20210329
